FAERS Safety Report 25469869 (Version 1)
Quarter: 2025Q2

REPORT INFORMATION
  Report Type: Spontaneous
  Country: US (occurrence: US)
  Receive Date: 20250623
  Receipt Date: 20250623
  Transmission Date: 20250717
  Serious: Yes (Other)
  Sender: NOVARTIS
  Company Number: US-INCYTE CORPORATION-2025IN006604

PATIENT
  Age: 82 Year
  Sex: Female

DRUGS (8)
  1. JAKAFI [Suspect]
     Active Substance: RUXOLITINIB
     Indication: Product used for unknown indication
     Route: 065
     Dates: start: 2020
  2. LEQVIO [Suspect]
     Active Substance: INCLISIRAN SODIUM
     Indication: Blood cholesterol increased
     Route: 058
     Dates: start: 20250128, end: 20250128
  3. TYLENOL [Concomitant]
     Active Substance: ACETAMINOPHEN
     Indication: Product used for unknown indication
     Route: 065
  4. VITAMIN D3 [Concomitant]
     Active Substance: CHOLECALCIFEROL
     Indication: Product used for unknown indication
     Dosage: 6000 MG, QD
     Route: 065
  5. SENOKOT [Concomitant]
     Active Substance: SENNOSIDES
     Indication: Product used for unknown indication
     Route: 065
  6. MAGNESIUM [Concomitant]
     Active Substance: MAGNESIUM
     Indication: Product used for unknown indication
     Dosage: 250 MG, QD ( QD IN AM)
     Route: 065
  7. CALCIUM [Concomitant]
     Active Substance: CALCIUM
     Indication: Product used for unknown indication
     Dosage: 600 MG, QD
     Route: 065
  8. NeuRx TF [Concomitant]
     Indication: Product used for unknown indication
     Dosage: UNK, QD
     Route: 065

REACTIONS (42)
  - Anaphylactic shock [Unknown]
  - Heart rate decreased [Not Recovered/Not Resolved]
  - Deafness [Unknown]
  - Neuropathy peripheral [Not Recovered/Not Resolved]
  - Cervical spinal stenosis [Unknown]
  - Vitreous detachment [Unknown]
  - Cataract [Unknown]
  - Vitritis [Unknown]
  - Retinal haemorrhage [Unknown]
  - Endometrial cancer [Unknown]
  - Arthritis [Unknown]
  - Atrial fibrillation [Unknown]
  - Dysphonia [Unknown]
  - Cough [Not Recovered/Not Resolved]
  - Hypopnoea [Not Recovered/Not Resolved]
  - Muscular weakness [Recovering/Resolving]
  - Activities of daily living decreased [Not Recovered/Not Resolved]
  - Influenza like illness [Not Recovered/Not Resolved]
  - Dyspepsia [Unknown]
  - Joint swelling [Unknown]
  - Hypertension [Unknown]
  - Blood potassium decreased [Unknown]
  - Low density lipoprotein increased [Unknown]
  - Sleep apnoea syndrome [Unknown]
  - Asthma [Unknown]
  - Arthropathy [Unknown]
  - Restless legs syndrome [Unknown]
  - Overweight [Unknown]
  - Balance disorder [Unknown]
  - Nystagmus [Unknown]
  - Lumbar spinal stenosis [Unknown]
  - Aortic aneurysm [Unknown]
  - Diplopia [Unknown]
  - Myalgia [Unknown]
  - Gait disturbance [Unknown]
  - Arthralgia [Unknown]
  - Bronchitis [Unknown]
  - Constipation [Unknown]
  - COVID-19 [Unknown]
  - Asthenia [Unknown]
  - Pyrexia [Unknown]
  - Dyspnoea [Unknown]

NARRATIVE: CASE EVENT DATE: 20200101
